FAERS Safety Report 24223026 (Version 1)
Quarter: 2024Q3

REPORT INFORMATION
  Report Type: Spontaneous
  Country: US (occurrence: None)
  Receive Date: 20240816
  Receipt Date: 20240816
  Transmission Date: 20241017
  Serious: Yes (Other)
  Sender: Public
  Company Number: None

PATIENT
  Age: 24 Year
  Sex: Female
  Weight: 90 kg

DRUGS (6)
  1. MONTELUKAST SODIUM [Suspect]
     Active Substance: MONTELUKAST\MONTELUKAST SODIUM
     Indication: Asthma
     Dates: start: 20230116, end: 20230628
  2. MONTELUKAST SODIUM [Suspect]
     Active Substance: MONTELUKAST\MONTELUKAST SODIUM
     Indication: Chronic sinusitis
  3. ALBUTEROL SULFATE [Concomitant]
     Active Substance: ALBUTEROL SULFATE
  4. olodpatine [Concomitant]
  5. BUDESONIDE [Concomitant]
     Active Substance: BUDESONIDE
  6. CETIRIZINE [Concomitant]
     Active Substance: CETIRIZINE HYDROCHLORIDE

REACTIONS (9)
  - Abnormal dreams [None]
  - Anxiety [None]
  - Depression [None]
  - Attention deficit hyperactivity disorder [None]
  - Obsessive-compulsive disorder [None]
  - Mood swings [None]
  - Suicidal behaviour [None]
  - Hallucination [None]
  - Therapy cessation [None]

NARRATIVE: CASE EVENT DATE: 20230601
